FAERS Safety Report 4982319-9 (Version None)
Quarter: 2006Q2

REPORT INFORMATION
  Report Type: 
  Country: None (occurrence: None)
  Receive Date: 20060425
  Receipt Date: 20050914
  Transmission Date: 20061013
  Serious: Yes (Disabling)
  Sender: FDA-Public Use
  Company Number: US-ROCHE-417939

PATIENT
  Sex: Female
  Weight: 51.3 kg

DRUGS (2)
  1. ACCUTANE [Suspect]
     Indication: ACNE
     Route: 048
     Dates: start: 20030407, end: 20030915
  2. AMNESTEEM [Suspect]
     Indication: DRUG USE FOR UNKNOWN INDICATION
     Route: 065

REACTIONS (16)
  - ANAEMIA [None]
  - ANXIETY [None]
  - CHRONIC FATIGUE SYNDROME [None]
  - COLITIS [None]
  - COLITIS ULCERATIVE [None]
  - DRUG HYPERSENSITIVITY [None]
  - GASTRITIS EROSIVE [None]
  - GASTROINTESTINAL DISORDER [None]
  - HEADACHE [None]
  - INFLAMMATORY BOWEL DISEASE [None]
  - INTERNAL INJURY [None]
  - INTESTINAL HAEMORRHAGE [None]
  - IRRITABLE BOWEL SYNDROME [None]
  - MULTI-ORGAN DISORDER [None]
  - PROCTITIS ULCERATIVE [None]
  - RASH [None]
